FAERS Safety Report 20584395 (Version 1)
Quarter: 2022Q1

REPORT INFORMATION
  Report Type: Spontaneous
  Country: US (occurrence: US)
  Receive Date: 20220311
  Receipt Date: 20220311
  Transmission Date: 20220423
  Serious: No
  Sender: FDA-Public Use
  Company Number: US-SA-SAC20220304000649

PATIENT
  Age: 58 Year
  Sex: Female

DRUGS (1)
  1. KEVZARA [Suspect]
     Active Substance: SARILUMAB
     Indication: Hypersomnia
     Dosage: 150 MG, QOW, (150MG/1.14ML)
     Route: 058
     Dates: start: 20201128

REACTIONS (3)
  - Headache [Unknown]
  - Abdominal pain upper [Unknown]
  - Product use in unapproved indication [Unknown]
